FAERS Safety Report 5380691-1 (Version None)
Quarter: 2007Q3

REPORT INFORMATION
  Report Type: 
  Country: None (occurrence: None)
  Receive Date: 20070706
  Receipt Date: 20070625
  Transmission Date: 20080115
  Serious: Yes (Death, Hospitalization)
  Sender: FDA-Public Use
  Company Number: GB-BRISTOL-MYERS SQUIBB COMPANY-13695085

PATIENT
  Age: 69 Year
  Sex: Female

DRUGS (9)
  1. CETUXIMAB [Suspect]
     Indication: COLORECTAL CANCER METASTATIC
     Route: 042
     Dates: start: 20061025, end: 20061025
  2. OXALIPLATIN [Suspect]
     Indication: COLORECTAL CANCER METASTATIC
     Route: 042
     Dates: start: 20061018, end: 20061018
  3. CAPECITABINE [Suspect]
     Indication: COLORECTAL CANCER METASTATIC
     Route: 048
     Dates: start: 20061030, end: 20061030
  4. CITALOPRAM HYDROBROMIDE [Concomitant]
     Route: 048
     Dates: start: 20060911
  5. MORPHINE SULFATE [Concomitant]
     Route: 048
     Dates: start: 20060901
  6. HALOPERIDOL [Concomitant]
     Route: 048
     Dates: start: 20060901
  7. LANSOPRAZOLE [Concomitant]
     Route: 048
     Dates: start: 20060901
  8. ZOPICLONE [Concomitant]
     Route: 048
     Dates: start: 20060906
  9. METOCLOPRAMIDE [Concomitant]

REACTIONS (7)
  - DIARRHOEA [None]
  - DISEASE PROGRESSION [None]
  - DIZZINESS [None]
  - FALL [None]
  - LETHARGY [None]
  - SUBDURAL HAEMATOMA [None]
  - VOMITING [None]
